FAERS Safety Report 19670724 (Version 7)
Quarter: 2022Q2

REPORT INFORMATION
  Report Type: Other
  Country: CA (occurrence: None)
  Receive Date: 20210806
  Receipt Date: 20220414
  Transmission Date: 20220720
  Serious: Yes (Other)
  Sender: FDA-Public Use
  Company Number: CA-ROCHE-2880591

PATIENT
  Sex: Female

DRUGS (1)
  1. TECENTRIQ [Suspect]
     Active Substance: ATEZOLIZUMAB
     Indication: Triple negative breast cancer
     Dosage: MORE DOSAGE INFORMATION IS 840 MG EVERY TWO WEEKS
     Route: 042
     Dates: start: 20210312

REACTIONS (6)
  - Neuropathy peripheral [Not Recovered/Not Resolved]
  - Impetigo [Recovering/Resolving]
  - Dry mouth [Not Recovered/Not Resolved]
  - Glossodynia [Recovered/Resolved]
  - Carbuncle [Not Recovered/Not Resolved]
  - Hypothyroidism [Not Recovered/Not Resolved]
